FAERS Safety Report 16482295 (Version 2)
Quarter: 2019Q3

REPORT INFORMATION
  Report Type: Spontaneous
  Country: US (occurrence: US)
  Receive Date: 20190627
  Receipt Date: 20190812
  Transmission Date: 20191004
  Serious: No
  Sender: FDA-Public Use
  Company Number: US-AMGEN-USASP2019100743

PATIENT
  Age: 58 Year
  Sex: Female

DRUGS (9)
  1. SODIUM CHLORIDE. [Concomitant]
     Active Substance: SODIUM CHLORIDE
     Dosage: 100 MILLILITER
     Route: 042
  2. TAXOL [Concomitant]
     Active Substance: PACLITAXEL
     Dosage: 275 MILLIGRAM (0.9% SODIUM CHLORIDE 500 ML)
     Route: 042
  3. BENADRYL [Concomitant]
     Active Substance: DIPHENHYDRAMINE HYDROCHLORIDE
     Dosage: 25 MILLIGRAM (IN 5% DEXTROSE IN WATER 50 ML)
     Route: 042
  4. ZANTAC [Concomitant]
     Active Substance: RANITIDINE HYDROCHLORIDE
     Dosage: 150 MILLIGRAM
  5. DECADRON [Concomitant]
     Active Substance: DEXAMETHASONE
     Dosage: 10 MILLIGRAM (IN 0.9% SODIUM CHLORIDE 100 ML)
     Route: 042
  6. AKYNZEO [Concomitant]
     Active Substance: NETUPITANT\PALONOSETRON HYDROCHLORIDE
     Dosage: 235 MILLIGRAM (0.9% SODIUM CHLORIDE 50 ML)
     Route: 042
  7. CARBOPLATIN. [Concomitant]
     Active Substance: CARBOPLATIN
     Dosage: 535 MILLIGRAM (IN 0.9% SODIUM CHLORIDE 500 ML)
     Route: 042
  8. HEPARIN [Concomitant]
     Active Substance: HEPARIN SODIUM
     Dosage: 100 UNITS/ML
     Route: 040
  9. NEULASTA [Suspect]
     Active Substance: PEGFILGRASTIM
     Indication: PRODUCT USED FOR UNKNOWN INDICATION
     Dosage: 6 MILLIGRAM
     Route: 058

REACTIONS (1)
  - Unintentional medical device removal [Unknown]

NARRATIVE: CASE EVENT DATE: 20190620
